FAERS Safety Report 8260101-7 (Version None)
Quarter: 2012Q2

REPORT INFORMATION
  Report Type: 
  Country: None (occurrence: None)
  Receive Date: 20120404
  Receipt Date: 20120403
  Transmission Date: 20120825
  Serious: Yes (Death, Hospitalization)
  Sender: FDA-Public Use
  Company Number: US-ABBOTT-12P-163-0921074-00

PATIENT
  Sex: Male
  Weight: 79.45 kg

DRUGS (4)
  1. UNKNOWN ANTIHYPERTENSIVES [Concomitant]
     Indication: HYPERTENSION
     Dates: end: 20110101
  2. ANDROGEL [Suspect]
     Indication: BLOOD TESTOSTERONE DECREASED
     Dates: start: 20110501
  3. UNKNOWN DIABETIC MEDICATIONS [Concomitant]
     Indication: DIABETES MELLITUS
     Dates: end: 20110101
  4. ANDROGEL [Suspect]
     Indication: ASTHENIA

REACTIONS (4)
  - WEIGHT DECREASED [None]
  - COUGH [None]
  - NON-SMALL CELL LUNG CANCER [None]
  - CONFUSIONAL STATE [None]
